FAERS Safety Report 4469107-7 (Version None)
Quarter: 2004Q4

REPORT INFORMATION
  Report Type: 
  Country: None (occurrence: None)
  Receive Date: 20041005
  Receipt Date: 20040928
  Transmission Date: 20050328
  Serious: Yes (Other)
  Sender: FDA-Public Use
  Company Number: HQWYE400828SEP04

PATIENT
  Age: 25 Year
  Sex: Female

DRUGS (1)
  1. TRIQUILAR (LEVONORGESTREL/ETHINYL ESTRADIOL, TABLET) [Suspect]
     Indication: MENSTRUATION IRREGULAR
     Dosage: 1 TABLET 1X PER 1 DAY
     Route: 048
     Dates: start: 20030901, end: 20040920

REACTIONS (3)
  - ABDOMINAL PAIN [None]
  - HEPATIC STEATOSIS [None]
  - WEIGHT INCREASED [None]
